FAERS Safety Report 12923299 (Version 2)
Quarter: 2016Q4

REPORT INFORMATION
  Report Type: Report from Study
  Country: US (occurrence: US)
  Receive Date: 20161109
  Receipt Date: 20161116
  Transmission Date: 20170207
  Serious: Yes (Hospitalization)
  Sender: FDA-Public Use
  Company Number: US-BIOGEN-2016BI00313861

PATIENT
  Sex: Male
  Weight: 77.18 kg

DRUGS (1)
  1. TECFIDERA [Suspect]
     Active Substance: DIMETHYL FUMARATE
     Indication: MULTIPLE SCLEROSIS
     Dosage: MAINTENANCE DOSE
     Route: 048
     Dates: start: 20150812

REACTIONS (5)
  - Speech disorder [Unknown]
  - Gait disturbance [Not Recovered/Not Resolved]
  - Thrombotic stroke [Recovered/Resolved]
  - Confusional state [Not Recovered/Not Resolved]
  - Drug dose omission [Recovered/Resolved]
